FAERS Safety Report 6197781-6 (Version None)
Quarter: 2009Q2

REPORT INFORMATION
  Report Type: 
  Country: None (occurrence: None)
  Receive Date: 20090521
  Receipt Date: 20090512
  Transmission Date: 20091009
  Serious: Yes (Hospitalization, Other)
  Sender: FDA-Public Use
  Company Number: US-PFIZER INC-2009212105

PATIENT
  Age: 73 Year
  Sex: Female
  Weight: 73.55 kg

DRUGS (12)
  1. BLINDED *PLACEBO [Suspect]
     Indication: RENAL CELL CARCINOMA
     Dosage: UNK
     Route: 048
     Dates: start: 20090331
  2. BLINDED *SORAFENIB [Suspect]
     Indication: RENAL CELL CARCINOMA
     Dosage: UNK
     Route: 048
     Dates: start: 20090331
  3. BLINDED SUNITINIB MALATE [Suspect]
     Indication: RENAL CELL CARCINOMA
     Dosage: UNK
     Route: 048
     Dates: start: 20090331
  4. ATENOLOL [Suspect]
     Dosage: UNK
     Dates: start: 20090408
  5. HYDROCHLOROTHIAZIDE [Suspect]
     Dosage: 25 MG, 1X/DAY
  6. ZOLOFT [Concomitant]
     Dosage: 50 MG, 1X/DAY
  7. ACETYLSALICYLIC ACID [Concomitant]
     Dosage: 81 MG, 1X/DAY
  8. COENZYME Q10 [Concomitant]
     Dosage: 10 MG, 1X/DAY
  9. ESTRACE [Concomitant]
     Dosage: 1 MG, 1X/DAY
  10. CHONDROITIN/GLUCOSAMINE [Concomitant]
     Dosage: UNK
  11. SYNTHROID [Concomitant]
     Dosage: 88 UG, 1X/DAY
  12. VYTORIN [Concomitant]
     Dosage: NIGHTLY

REACTIONS (7)
  - ANOREXIA [None]
  - CHEST PAIN [None]
  - DEHYDRATION [None]
  - DIZZINESS [None]
  - FATIGUE [None]
  - HEADACHE [None]
  - PLATELET COUNT DECREASED [None]
